FAERS Safety Report 8949500 (Version 2)
Quarter: 2013Q1

REPORT INFORMATION
  Report Type: Spontaneous
  Country: JP (occurrence: JP)
  Receive Date: 20121206
  Receipt Date: 20130215
  Transmission Date: 20140127
  Serious: Yes (Other)
  Sender: FDA-Public Use
  Company Number: JP-JNJFOC-20121200395

PATIENT
  Age: 78 Year
  Sex: Female

DRUGS (2)
  1. DUROTEP MT [Suspect]
     Indication: CANCER PAIN
     Route: 062
     Dates: start: 20121108
  2. CALONAL [Concomitant]
     Indication: CANCER PAIN
     Route: 048
     Dates: start: 20121128

REACTIONS (3)
  - Delirium febrile [Recovered/Resolved]
  - Hallucination [Recovered/Resolved]
  - Upper respiratory tract inflammation [Recovered/Resolved]
